APPROVED DRUG PRODUCT: SULFACETAMIDE SODIUM AND PREDNISOLONE SODIUM PHOSPHATE
Active Ingredient: PREDNISOLONE SODIUM PHOSPHATE; SULFACETAMIDE SODIUM
Strength: EQ 0.23% PHOSPHATE;10%
Dosage Form/Route: SOLUTION/DROPS;OPHTHALMIC
Application: A073630 | Product #001
Applicant: GENUS LIFESCIENCES INC
Approved: May 27, 1993 | RLD: No | RS: No | Type: DISCN